FAERS Safety Report 20949575 (Version 1)
Quarter: 2022Q2

REPORT INFORMATION
  Report Type: Spontaneous
  Country: US (occurrence: US)
  Receive Date: 20220613
  Receipt Date: 20220613
  Transmission Date: 20220720
  Serious: Yes (Other)
  Sender: FDA-Public Use
  Company Number: US-HETERO-HET2022US01257

PATIENT
  Sex: Male
  Weight: 77 kg

DRUGS (1)
  1. LOSARTAN [Suspect]
     Active Substance: LOSARTAN
     Indication: Blood pressure abnormal
     Dosage: 50 MG, QD
     Route: 048
     Dates: start: 20211201, end: 20220603

REACTIONS (5)
  - Neuropathy peripheral [Unknown]
  - Renal impairment [Unknown]
  - Monocyte count increased [Unknown]
  - Vision blurred [Unknown]
  - Blood creatinine increased [Unknown]
